FAERS Safety Report 17800916 (Version 4)
Quarter: 2021Q2

REPORT INFORMATION
  Report Type: Spontaneous
  Country: CA (occurrence: CA)
  Receive Date: 20200518
  Receipt Date: 20210508
  Transmission Date: 20210716
  Serious: Yes (Other)
  Sender: FDA-Public Use
  Company Number: CA-CELLTRION INC.-2019CA027394

PATIENT

DRUGS (3)
  1. INFLECTRA [Suspect]
     Active Substance: INFLIXIMAB-DYYB
     Indication: CROHN^S DISEASE
     Dosage: 600MG EVERY 8 WEEKS
     Dates: start: 20191122, end: 20191122
  2. INFLECTRA [Suspect]
     Active Substance: INFLIXIMAB-DYYB
     Dosage: 600 MG EVERY 4 WEEKS
     Route: 042
     Dates: start: 20200227
  3. INFLECTRA [Suspect]
     Active Substance: INFLIXIMAB-DYYB
     Dosage: 600 MG EVERY 4 WEEKS
     Route: 042
     Dates: start: 20191202, end: 20191202

REACTIONS (6)
  - Pyoderma gangrenosum [Unknown]
  - Faecal calprotectin increased [Unknown]
  - Product use issue [Unknown]
  - Pain [Unknown]
  - Abdominal pain [Unknown]
  - Off label use [Unknown]

NARRATIVE: CASE EVENT DATE: 20191122
